FAERS Safety Report 6877702-0 (Version None)
Quarter: 2010Q3

REPORT INFORMATION
  Report Type: 
  Country: None (occurrence: None)
  Receive Date: 20100727
  Receipt Date: 20100702
  Transmission Date: 20110219
  Serious: No
  Sender: FDA-Public Use
  Company Number: US-ABBOTT-10P-163-0651948-00

PATIENT
  Sex: Female

DRUGS (2)
  1. SYNTHROID [Suspect]
     Indication: PRODUCT USED FOR UNKNOWN INDICATION
  2. CYTOMEL [Suspect]
     Indication: TRI-IODOTHYRONINE DECREASED

REACTIONS (5)
  - ASTHMA [None]
  - DRUG INEFFECTIVE [None]
  - HYPOTHYROIDISM [None]
  - PALPITATIONS [None]
  - RESPIRATORY DISORDER [None]
